FAERS Safety Report 13114109 (Version 1)
Quarter: 2017Q1

REPORT INFORMATION
  Report Type: Spontaneous
  Country: US (occurrence: US)
  Receive Date: 20170113
  Receipt Date: 20170113
  Transmission Date: 20170428
  Serious: No
  Sender: FDA-Public Use
  Company Number: US-PFIZER INC-2017009751

PATIENT
  Age: 59 Year
  Sex: Female

DRUGS (1)
  1. GABAPENTIN. [Suspect]
     Active Substance: GABAPENTIN
     Indication: NEUROPATHY PERIPHERAL
     Dosage: 100 MG, (100 MG TITRATED TO 200 AM 900 HS)
     Route: 048
     Dates: start: 20160503, end: 20160610

REACTIONS (3)
  - Somnolence [Recovered/Resolved]
  - Product use issue [Unknown]
  - Feeling abnormal [Recovered/Resolved]

NARRATIVE: CASE EVENT DATE: 20160503
